FAERS Safety Report 7027571-3 (Version None)
Quarter: 2010Q4

REPORT INFORMATION
  Report Type: 
  Country: None (occurrence: None)
  Receive Date: 20101004
  Receipt Date: 20100923
  Transmission Date: 20110411
  Serious: Yes (Hospitalization)
  Sender: FDA-Public Use
  Company Number: BR-MEDIMMUNE-MEDI-0011566

PATIENT
  Sex: Male
  Weight: 8.44 kg

DRUGS (4)
  1. SYNAGIS [Suspect]
     Indication: BRONCHOPULMONARY DYSPLASIA
     Route: 030
     Dates: start: 20100524
  2. VIGABATRIN [Concomitant]
     Route: 048
     Dates: start: 20100101
  3. PHENOBARBITAL [Concomitant]
     Route: 048
     Dates: start: 20090801
  4. PHENOBARBITAL [Concomitant]
     Route: 048

REACTIONS (3)
  - PNEUMONIA [None]
  - VARICELLA [None]
  - VOMITING [None]
